FAERS Safety Report 8583509 (Version 2)
Quarter: 2014Q1

REPORT INFORMATION
  Report Type: Spontaneous
  Country: US (occurrence: None)
  Receive Date: 20120323
  Receipt Date: 20130305
  Transmission Date: 20141002
  Serious: Yes (Disabling)
  Sender: FDA-Public Use
  Company Number: 163-21880-11052782

PATIENT
  Age: 39 Year
  Sex: Male
  Weight: 91.63 kg

DRUGS (7)
  1. REVLIMID [Suspect]
     Indication: PLASMA CELL MYELOMA
     Route: 048
     Dates: start: 20100907, end: 20110504
  2. NEURONTIN [Concomitant]
  3. DURAGESIC [Concomitant]
  4. ASA (ACETYLSALICYLIC ACID) [Concomitant]
  5. DEXAMETHASONE [Concomitant]
  6. KCL (POTASSIUM CHLORIDE) [Concomitant]
  7. POTASSIUM CHLORIDE [Concomitant]

REACTIONS (3)
  - Pain [None]
  - Pain in extremity [None]
  - Hypoacusis [None]
